FAERS Safety Report 5247612-3 (Version None)
Quarter: 2007Q1

REPORT INFORMATION
  Report Type: 
  Country: None (occurrence: None)
  Receive Date: 20070223
  Receipt Date: 20070223
  Transmission Date: 20070707
  Serious: Yes (Death, Hospitalization)
  Sender: FDA-Public Use
  Company Number: None

PATIENT
  Sex: Female
  Weight: 68.4932 kg

DRUGS (10)
  1. MEGACE [Suspect]
     Indication: WEIGHT DECREASED
     Dosage: 800 MG QDAY
     Dates: start: 20061117
  2. COLACE [Concomitant]
  3. PERCOCET [Concomitant]
  4. OXYCODONE HCL [Concomitant]
  5. PROCHOLPERAZINE MALEATE [Concomitant]
  6. KYTRIL [Concomitant]
  7. LEXARPO [Concomitant]
  8. ALPRZOLAM [Concomitant]
  9. LEVAQUIN [Concomitant]
  10. POTASSIUM CHLORIDE [Concomitant]

REACTIONS (4)
  - CONFUSIONAL STATE [None]
  - MULTI-ORGAN FAILURE [None]
  - PNEUMONIA [None]
  - SEPSIS [None]
